FAERS Safety Report 16176596 (Version 5)
Quarter: 2022Q2

REPORT INFORMATION
  Report Type: Report from Study
  Country: US (occurrence: US)
  Receive Date: 20190409
  Receipt Date: 20220607
  Transmission Date: 20220720
  Serious: Yes (Hospitalization, Other)
  Sender: FDA-Public Use
  Company Number: US-GILEAD-2019-0400631

PATIENT
  Age: 67 Year
  Sex: Male
  Weight: 80.2 kg

DRUGS (57)
  1. AXICABTAGENE CILOLEUCEL [Suspect]
     Active Substance: AXICABTAGENE CILOLEUCEL
     Indication: Follicular lymphoma
     Dosage: 2.0 X 10E6 CELLS/KG
     Route: 042
     Dates: start: 20190325, end: 20190325
  2. FLUDARABINE [Suspect]
     Active Substance: FLUDARABINE PHOSPHATE
     Indication: Bone marrow conditioning regimen
     Dosage: 30 QD
     Route: 042
     Dates: start: 20190320, end: 20190322
  3. CYCLOPHOSPHAMIDE [Suspect]
     Active Substance: CYCLOPHOSPHAMIDE
     Indication: Bone marrow conditioning regimen
     Dosage: 500 QD
     Route: 042
     Dates: start: 20190320, end: 20190322
  4. MESNA [Suspect]
     Active Substance: MESNA
     Indication: Prophylaxis
     Dosage: 1030, QD
     Route: 042
     Dates: start: 20190321, end: 20190322
  5. MESNA [Suspect]
     Active Substance: MESNA
     Dosage: 50, QD
     Route: 042
     Dates: start: 20190320, end: 20190320
  6. ATORVASTATIN [Concomitant]
     Active Substance: ATORVASTATIN
     Dosage: 40,MG,DAILY
     Route: 048
     Dates: start: 20120101
  7. NAPROXEN [Concomitant]
     Active Substance: NAPROXEN
     Dosage: 500,MG,AS NECESSARY
     Route: 048
     Dates: start: 20120101, end: 20190324
  8. METFORMIN [Concomitant]
     Active Substance: METFORMIN HYDROCHLORIDE
     Dosage: 500,MG,TWICE DAILY
     Route: 048
     Dates: start: 20131007, end: 20190324
  9. CHOLECALCIFEROL [Concomitant]
     Active Substance: CHOLECALCIFEROL
     Dosage: 1000,IU,DAILY
     Route: 048
     Dates: start: 20150101, end: 20190402
  10. CHOLECALCIFEROL [Concomitant]
     Active Substance: CHOLECALCIFEROL
     Dosage: 1000,IU,DAILY
     Route: 048
     Dates: start: 20190404
  11. CYCLOBENZAPRINE [Concomitant]
     Active Substance: CYCLOBENZAPRINE
     Dosage: 5,MG,THREE TIMES DAILY
     Route: 048
     Dates: start: 20150101, end: 20190324
  12. OMEPRAZOLE [Concomitant]
     Active Substance: OMEPRAZOLE
     Dosage: 20,MG,DAILY
     Route: 048
     Dates: start: 20170101, end: 20190324
  13. SODIUM CHLORIDE [Concomitant]
     Active Substance: SODIUM CHLORIDE
     Dosage: 1000,ML,OTHER
     Route: 041
     Dates: start: 20190305, end: 20190305
  14. SODIUM CHLORIDE [Concomitant]
     Active Substance: SODIUM CHLORIDE
     Dosage: 2000,ML,DAILY
     Route: 041
     Dates: start: 20190320, end: 20190322
  15. SODIUM CHLORIDE [Concomitant]
     Active Substance: SODIUM CHLORIDE
     Dosage: 250,ML,DAILY
     Route: 041
     Dates: start: 20190325, end: 20190325
  16. SODIUM CHLORIDE [Concomitant]
     Active Substance: SODIUM CHLORIDE
     Dosage: 10,OTHER,OTHER
     Route: 041
     Dates: start: 20190325, end: 20190326
  17. SODIUM CHLORIDE [Concomitant]
     Active Substance: SODIUM CHLORIDE
     Dosage: 500,ML,DAILY
     Route: 041
     Dates: start: 20190326, end: 20190326
  18. SODIUM CHLORIDE [Concomitant]
     Active Substance: SODIUM CHLORIDE
     Dosage: 10,OTHER,OTHER
     Route: 041
     Dates: start: 20190329, end: 20190329
  19. SODIUM CHLORIDE [Concomitant]
     Active Substance: SODIUM CHLORIDE
     Dosage: 50,OTHER,OTHER
     Route: 041
     Dates: start: 20190401, end: 20190407
  20. SODIUM CHLORIDE [Concomitant]
     Active Substance: SODIUM CHLORIDE
     Dosage: 500,ML,TWICE DAILY
     Route: 041
     Dates: start: 20190401, end: 20190401
  21. SODIUM CHLORIDE [Concomitant]
     Active Substance: SODIUM CHLORIDE
     Dosage: 500,ML,DAILY
     Route: 041
     Dates: start: 20190402, end: 20190407
  22. CALCIUM GLUCONATE [Concomitant]
     Active Substance: CALCIUM GLUCONATE
     Dosage: 1,MG,TWICE DAILY
     Route: 041
     Dates: start: 20190305, end: 20190305
  23. CALCIUM GLUCONATE [Concomitant]
     Active Substance: CALCIUM GLUCONATE
     Dosage: 1,G,OTHER
     Route: 041
     Dates: start: 20190305, end: 20190305
  24. CALCIUM GLUCONATE [Concomitant]
     Active Substance: CALCIUM GLUCONATE
     Dosage: 2,G,OTHER
     Route: 041
     Dates: start: 20190402, end: 20190402
  25. HEPARIN [Concomitant]
     Active Substance: HEPARIN SODIUM
     Dosage: 3800,IU,OTHER
     Route: 050
     Dates: start: 20190305, end: 20190305
  26. HEPARIN [Concomitant]
     Active Substance: HEPARIN SODIUM
     Dosage: 13.86,OTHER,OTHER
     Route: 041
     Dates: start: 20190403, end: 20190406
  27. ONDANSETRON [Concomitant]
     Active Substance: ONDANSETRON
     Dosage: 16,MG,DAILY
     Route: 041
     Dates: start: 20190320, end: 20190322
  28. ONDANSETRON [Concomitant]
     Active Substance: ONDANSETRON
     Dosage: 8,MG,AS NECESSARY
     Route: 041
     Dates: start: 20190401, end: 20190401
  29. ONDANSETRON [Concomitant]
     Active Substance: ONDANSETRON
     Dosage: 8,MG,DAILY
     Route: 041
     Dates: start: 20190403, end: 20190403
  30. ONDANSETRON [Concomitant]
     Active Substance: ONDANSETRON
     Dosage: 4,MG,AS NECESSARY
     Route: 048
     Dates: start: 20190408, end: 20190408
  31. ALLOPURINOL [Concomitant]
     Active Substance: ALLOPURINOL
     Dosage: 300,MG,DAILY
     Route: 048
     Dates: start: 20190404, end: 20190406
  32. ALLOPURINOL [Concomitant]
     Active Substance: ALLOPURINOL
     Dosage: 1030,MG,DAILY
     Route: 048
     Dates: start: 20190322, end: 20190402
  33. PHYTONADIONE [Concomitant]
     Active Substance: PHYTONADIONE
     Dosage: 10,MG,DAILY
     Route: 048
     Dates: start: 20190324, end: 20190324
  34. PHYTONADIONE [Concomitant]
     Active Substance: PHYTONADIONE
     Dosage: 10,MG,DAILY
     Route: 048
     Dates: start: 20190331, end: 20190331
  35. PHYTONADIONE [Concomitant]
     Active Substance: PHYTONADIONE
     Dosage: 10,MG,DAILY
     Route: 048
     Dates: start: 20190407, end: 20190407
  36. MELATONIN [Concomitant]
     Active Substance: MELATONIN
     Dosage: 5,MG,DAILY
     Route: 048
     Dates: start: 20190325, end: 20190402
  37. PANTOPRAZOLE [Concomitant]
     Active Substance: PANTOPRAZOLE
     Dosage: 40,MG,DAILY
     Route: 048
     Dates: start: 20190325, end: 20190408
  38. DIPHENHYDRAMINE [Concomitant]
     Active Substance: DIPHENHYDRAMINE
     Dosage: 25,MG,DAILY
     Route: 041
     Dates: start: 20190325, end: 20190325
  39. ACETAMINOPHEN [Concomitant]
     Active Substance: ACETAMINOPHEN
     Dosage: 650,MG,DAILY
     Route: 048
     Dates: start: 20190325, end: 20190325
  40. ACETAMINOPHEN [Concomitant]
     Active Substance: ACETAMINOPHEN
     Dosage: 650,MG,DAILY
     Route: 048
     Dates: start: 20190330, end: 20190402
  41. ACETAMINOPHEN [Concomitant]
     Active Substance: ACETAMINOPHEN
     Dosage: 500,MG,AS NECESSARY
     Route: 048
     Dates: start: 20190406, end: 20190407
  42. LACTULOSE [Concomitant]
     Active Substance: LACTULOSE
     Dosage: 20,G,DAILY
     Route: 048
     Dates: start: 20190328, end: 20190328
  43. LACTULOSE [Concomitant]
     Active Substance: LACTULOSE
     Dosage: 20,G,THREE TIMES DAILY
     Route: 048
     Dates: start: 20190329, end: 20190329
  44. LACTULOSE [Concomitant]
     Active Substance: LACTULOSE
     Dosage: 20,G,DAILY
     Route: 048
     Dates: start: 20190331, end: 20190331
  45. SENNOSIDES A AND B [Concomitant]
     Active Substance: SENNOSIDES A AND B
     Dosage: 1,OTHER,DAILY
     Route: 048
     Dates: start: 20190328, end: 20190330
  46. SENNOSIDES A AND B [Concomitant]
     Active Substance: SENNOSIDES A AND B
     Dosage: 2,OTHER,DAILY
     Route: 048
     Dates: start: 20190331, end: 20190331
  47. DOCUSATE [Concomitant]
     Active Substance: DOCUSATE
     Dosage: 100,MG,TWICE DAILY
     Route: 048
     Dates: start: 20190328, end: 20190401
  48. DOCUSATE [Concomitant]
     Active Substance: DOCUSATE
     Dosage: 200,MG,DAILY
     Route: 048
     Dates: start: 20190407, end: 20190407
  49. MAGNESIUM CITRATE [Concomitant]
     Active Substance: MAGNESIUM CITRATE
     Dosage: 148,ML,DAILY
     Route: 041
     Dates: start: 20190330, end: 20190330
  50. MEROPENEM [Concomitant]
     Active Substance: MEROPENEM
     Dosage: 2,G,THREE TIMES DAILY
     Route: 041
     Dates: start: 20190330, end: 20190403
  51. POLYETHYLENE GLYCOL [Concomitant]
     Active Substance: POLYETHYLENE GLYCOL
     Dosage: 17,G,DAILY
     Route: 048
     Dates: start: 20190330, end: 20190401
  52. BISACODYL [Concomitant]
     Active Substance: BISACODYL
     Dosage: 10,MG,DAILY
     Route: 048
     Dates: start: 20190330, end: 20190331
  53. PEG-3350 AND ELECTROLYTES [Concomitant]
     Active Substance: POLYETHYLENE GLYCOL 3350\POTASSIUM CHLORIDE\SODIUM BICARBONATE\SODIUM CHLORIDE\SODIUM SULFATE
     Dosage: 2120,ML,DAILY
     Route: 048
     Dates: start: 20190331, end: 20190331
  54. MAGNESIUM SULFATE [Concomitant]
     Active Substance: MAGNESIUM SULFATE
     Dosage: 2,G,DAILY
     Route: 041
     Dates: start: 20190331, end: 20190331
  55. MAGNESIUM SULFATE [Concomitant]
     Active Substance: MAGNESIUM SULFATE
     Dosage: 2,G,DAILY
     Route: 041
     Dates: start: 20190407, end: 20190407
  56. TOCILIZUMAB [Concomitant]
     Active Substance: TOCILIZUMAB
     Dosage: 602.4,MG,OTHER
     Route: 041
     Dates: start: 20190331, end: 20190331
  57. TOCILIZUMAB [Concomitant]
     Active Substance: TOCILIZUMAB
     Dosage: 8,OTHER,DAILY
     Route: 041
     Dates: start: 20190401, end: 20190402

REACTIONS (6)
  - Gait disturbance [Recovered/Resolved]
  - Immune effector cell-associated neurotoxicity syndrome [Recovered/Resolved]
  - Tremor [Recovered/Resolved]
  - Muscular weakness [Recovered/Resolved]
  - Aphasia [Recovered/Resolved]
  - Colorectal cancer [Recovered/Resolved]

NARRATIVE: CASE EVENT DATE: 20190402
